FAERS Safety Report 16310574 (Version 1)
Quarter: 2019Q2

REPORT INFORMATION
  Report Type: Spontaneous
  Country: US (occurrence: US)
  Receive Date: 20190513
  Receipt Date: 20190513
  Transmission Date: 20190711
  Serious: Yes (Life-Threatening, Hospitalization)
  Sender: FDA-Public Use
  Company Number: None

PATIENT
  Age: 93 Year
  Sex: Male
  Weight: 53.1 kg

DRUGS (1)
  1. ALTEPLASE INTRAVENOUS [Suspect]
     Active Substance: ALTEPLASE
     Indication: ISCHAEMIC STROKE
     Dosage: ?          OTHER FREQUENCY:ONCE;?
     Route: 041
     Dates: start: 20190509, end: 20190509

REACTIONS (3)
  - Intraventricular haemorrhage [None]
  - Cerebral haemorrhage [None]
  - Nervous system disorder [None]

NARRATIVE: CASE EVENT DATE: 20190509
